FAERS Safety Report 6172398-8 (Version None)
Quarter: 2009Q2

REPORT INFORMATION
  Report Type: 
  Country: None (occurrence: None)
  Receive Date: 20090429
  Receipt Date: 20090422
  Transmission Date: 20091009
  Serious: Yes (Other)
  Sender: FDA-Public Use
  Company Number: PHEH2007US15444

PATIENT
  Sex: Female

DRUGS (3)
  1. ZOMETA [Suspect]
  2. CHEMOTHERAPEUTICS NOS [Concomitant]
  3. RADIATION THERAPY [Concomitant]

REACTIONS (8)
  - ANAEMIA [None]
  - ANHEDONIA [None]
  - ANXIETY [None]
  - HYPOTHYROIDISM [None]
  - INJURY [None]
  - INSOMNIA [None]
  - OSTEONECROSIS [None]
  - PAIN [None]
